FAERS Safety Report 5309552-0 (Version None)
Quarter: 2007Q2

REPORT INFORMATION
  Report Type: 
  Country: None (occurrence: None)
  Receive Date: 20070427
  Receipt Date: 20061129
  Transmission Date: 20071010
  Serious: No
  Sender: FDA-Public Use
  Company Number: US-GLAXOSMITHKLINE-A0629460A

PATIENT
  Age: 62 Year
  Sex: Male

DRUGS (22)
  1. DEXEDRINE [Suspect]
     Indication: DEPRESSION
     Dosage: 5MG FOUR TIMES PER DAY
     Route: 048
  2. DEXTROAMPHETAMINE SULFATE [Suspect]
     Indication: DEPRESSION
     Dosage: 5MG THREE TIMES PER DAY
     Route: 048
  3. PRAVACHOL [Concomitant]
  4. PLAVIX [Concomitant]
  5. COTRIM [Concomitant]
  6. PRILOSEC [Concomitant]
  7. ASPIRIN [Concomitant]
  8. ISOSORBIDE [Concomitant]
  9. GLUCOPHAGE [Concomitant]
  10. M.V.I. [Concomitant]
  11. DOCUSATE [Concomitant]
  12. SENOKOT [Concomitant]
  13. EPIVIR [Concomitant]
  14. ZERIT [Concomitant]
  15. TOPROL-XL [Concomitant]
  16. CRIXIVAN [Concomitant]
  17. TRAZODONE HCL [Concomitant]
  18. CLONAZEPAM [Concomitant]
  19. CYCLOBENZAPRINE HCL [Concomitant]
  20. XANAX [Concomitant]
  21. HYDROCODONE [Concomitant]
  22. OXYCONTIN [Concomitant]

REACTIONS (2)
  - DRUG INEFFECTIVE [None]
  - THERAPEUTIC RESPONSE UNEXPECTED [None]
